FAERS Safety Report 8283159-8 (Version None)
Quarter: 2012Q2

REPORT INFORMATION
  Report Type: 
  Country: None (occurrence: None)
  Receive Date: 20120413
  Receipt Date: 20120402
  Transmission Date: 20120825
  Serious: Yes (Hospitalization)
  Sender: FDA-Public Use
  Company Number: IL-GLAXOSMITHKLINE-B0795060A

PATIENT
  Age: 62 Year
  Sex: Male

DRUGS (14)
  1. LEVOTHYROXINE SODIUM [Suspect]
     Dosage: 100MCG PER DAY
     Route: 065
  2. LOSARTAN POTASSIUM [Suspect]
     Dosage: 50MG PER DAY
     Route: 065
  3. COLCHICINE [Suspect]
     Dosage: .5MG PER DAY
     Route: 065
  4. OMEPRAZOLE [Suspect]
     Dosage: 20MG PER DAY
     Route: 065
  5. BEZAFIBRATE [Suspect]
     Dosage: 400MG PER DAY
     Route: 065
  6. FLUTICASONE PROPIONATE/SALMETEROL [Suspect]
     Route: 065
  7. WARFARIN SODIUM [Suspect]
     Indication: INTRACARDIAC THROMBUS
     Dosage: 5MG PER DAY
     Route: 065
  8. FUROSEMIDE [Suspect]
     Route: 065
  9. SIMVASTATIN [Suspect]
     Dosage: 40MG PER DAY
     Route: 065
  10. PREGABALIN [Suspect]
     Dosage: 75MG TWICE PER DAY
     Route: 065
  11. IPRATROPIUM BROMIDE [Suspect]
     Route: 055
  12. ASPIRIN [Suspect]
     Dosage: 100MG PER DAY
     Route: 065
  13. INSULIN GLARGINE [Suspect]
     Route: 065
  14. CARVEDILOL [Suspect]
     Dosage: 3.1MG PER DAY
     Route: 065

REACTIONS (7)
  - DIZZINESS [None]
  - MUSCLE SPASMS [None]
  - GAIT DISTURBANCE [None]
  - FATIGUE [None]
  - COUGH [None]
  - MYALGIA [None]
  - ASTHENIA [None]
